FAERS Safety Report 9375481 (Version 1)
Quarter: 2013Q2

REPORT INFORMATION
  Report Type: Other
  Country: GB (occurrence: GB)
  Receive Date: 20130628
  Receipt Date: 20130628
  Transmission Date: 20140414
  Serious: Yes (Life-Threatening, Hospitalization)
  Sender: FDA-Public Use
  Company Number: GB-WATSON-2013-11525

PATIENT
  Sex: 0

DRUGS (2)
  1. ATRACURIUM BESYLATE [Suspect]
     Indication: MUSCLE RELAXANT THERAPY
     Dosage: 40 MG, UNK
     Route: 042
     Dates: start: 201106, end: 201106
  2. BRICANYL [Concomitant]
     Indication: PRODUCT USED FOR UNKNOWN INDICATION
     Dosage: UNK, UNKNOWN
     Route: 065

REACTIONS (1)
  - Anaphylactic reaction [Recovered/Resolved]
